FAERS Safety Report 5275472-3 (Version None)
Quarter: 2007Q1

REPORT INFORMATION
  Report Type: 
  Country: None (occurrence: None)
  Receive Date: 20070326
  Receipt Date: 20070313
  Transmission Date: 20070707
  Serious: Yes (Hospitalization)
  Sender: FDA-Public Use
  Company Number: JP-ROCHE-484780

PATIENT
  Age: 81 Year
  Sex: Female
  Weight: 55 kg

DRUGS (6)
  1. TAMIFLU [Suspect]
     Indication: INFLUENZA
     Route: 048
     Dates: start: 20070220, end: 20070222
  2. LORFENAMIN [Suspect]
     Indication: PYREXIA
     Route: 048
     Dates: start: 20070220, end: 20070222
  3. SOFALCONE [Suspect]
     Indication: GASTRITIS
     Dosage: TRADE NAME WAS REPORTED AS SOLOFAL.
     Route: 048
     Dates: start: 20070220, end: 20070222
  4. LASIX [Concomitant]
     Route: 048
  5. EPINASTINE [Concomitant]
     Route: 048
  6. PARIET [Concomitant]
     Route: 048

REACTIONS (3)
  - HEPATIC FUNCTION ABNORMAL [None]
  - PNEUMONIA [None]
  - PNEUMONITIS [None]
